FAERS Safety Report 26048947 (Version 1)
Quarter: 2025Q4

REPORT INFORMATION
  Report Type: Spontaneous
  Country: US (occurrence: US)
  Receive Date: 20251115
  Receipt Date: 20251115
  Transmission Date: 20260118
  Serious: No
  Sender: SANOFI AVENTIS
  Company Number: US-SA-2025SA339008

PATIENT
  Sex: Female
  Weight: 61.23 kg

DRUGS (6)
  1. DUPIXENT [Suspect]
     Active Substance: DUPILUMAB
     Indication: Idiopathic urticaria
     Dosage: 300 MG, QOW
     Route: 058
  2. FISH OIL [Concomitant]
     Active Substance: FISH OIL
  3. TESTOSTERONE CYPIONATE [Concomitant]
     Active Substance: TESTOSTERONE CYPIONATE
  4. ESTRADIOL [Concomitant]
     Active Substance: ESTRADIOL
  5. PROGESTERONE [Concomitant]
     Active Substance: PROGESTERONE
  6. XOLAIR [Concomitant]
     Active Substance: OMALIZUMAB

REACTIONS (1)
  - Drug ineffective [Unknown]
